FAERS Safety Report 5119114-6 (Version None)
Quarter: 2006Q3

REPORT INFORMATION
  Report Type: 
  Country: None (occurrence: None)
  Receive Date: 20060925
  Receipt Date: 20060920
  Transmission Date: 20061208
  Serious: Yes (Other)
  Sender: FDA-Public Use
  Company Number: HQWYE936320SEP06

PATIENT
  Sex: Male

DRUGS (2)
  1. CORDAREX (AMIODARONE , TABLET) [Suspect]
     Indication: ATRIAL FIBRILLATION
     Dosage: 1 TABLET 1X PER 1 DAY ORAL; 200 DAILY ORAL
     Route: 048
     Dates: start: 20051201, end: 20060601
  2. CORDAREX (AMIODARONE , TABLET) [Suspect]
     Indication: ATRIAL FIBRILLATION
     Dosage: 1 TABLET 1X PER 1 DAY ORAL; 200 DAILY ORAL
     Route: 048
     Dates: start: 20060101

REACTIONS (2)
  - BLOOD PRESSURE DIASTOLIC INCREASED [None]
  - HYPERTHYROIDISM [None]
